FAERS Safety Report 9803348 (Version 1)
Quarter: 2014Q1

REPORT INFORMATION
  Report Type: Spontaneous
  Country: US (occurrence: None)
  Receive Date: 20140102
  Receipt Date: 20140102
  Transmission Date: 20141002
  Serious: Yes (Other)
  Sender: FDA-Public Use
  Company Number: UTC-041918

PATIENT
  Sex: Male

DRUGS (1)
  1. TYVASO INHALATION SYSTEM [Suspect]

REACTIONS (2)
  - Medical device complication [None]
  - Device failure [None]
